FAERS Safety Report 9648831 (Version 1)
Quarter: 2013Q4

REPORT INFORMATION
  Report Type: Spontaneous
  Country: US (occurrence: US)
  Receive Date: 20131028
  Receipt Date: 20131028
  Transmission Date: 20140711
  Serious: Yes (Hospitalization, Other)
  Sender: FDA-Public Use
  Company Number: US-SA-2013SA107766

PATIENT
  Age: 69 Year
  Sex: Male

DRUGS (4)
  1. LANTUS SOLOSTAR [Suspect]
     Indication: TYPE 2 DIABETES MELLITUS
     Dosage: DOSE - HE HAD BEEN TAKING 30 UNITS IN THE MORNING AND 50 UNITS IN THE EVENING
     Route: 051
  2. SOLOSTAR [Concomitant]
     Indication: TYPE 2 DIABETES MELLITUS
  3. BRILINTA [Concomitant]
     Indication: STENT PLACEMENT
     Route: 065
  4. METFORMIN [Concomitant]

REACTIONS (5)
  - Cerebrovascular accident [Unknown]
  - Myocardial infarction [Unknown]
  - Weight decreased [Unknown]
  - Blood glucose decreased [Unknown]
  - Unevaluable event [Unknown]
